FAERS Safety Report 4798093-5 (Version None)
Quarter: 2005Q4

REPORT INFORMATION
  Report Type: 
  Country: None (occurrence: None)
  Receive Date: 20051006
  Receipt Date: 20051006
  Transmission Date: 20060501
  Serious: Yes (Hospitalization)
  Sender: FDA-Public Use
  Company Number: None

PATIENT
  Sex: Male
  Weight: 106 kg

DRUGS (5)
  1. CEPHALEXIN [Suspect]
     Indication: PSORIASIS
     Dosage: 500 MG PO Q 6 HOURS
     Route: 048
     Dates: start: 20040509, end: 20040523
  2. AMLODIPINE [Concomitant]
  3. METHOTREXATE [Concomitant]
  4. COMBIVENT [Concomitant]
  5. UNASYN [Suspect]
     Dosage: SEE IMAGE
     Route: 042
     Dates: start: 20040524, end: 20040527

REACTIONS (4)
  - PANNICULITIS [None]
  - PETECHIAE [None]
  - RASH ERYTHEMATOUS [None]
  - SKIN HAEMORRHAGE [None]
